FAERS Safety Report 15771676 (Version 4)
Quarter: 2019Q1

REPORT INFORMATION
  Report Type: Report from Study
  Country: CA (occurrence: CA)
  Receive Date: 20181228
  Receipt Date: 20190322
  Transmission Date: 20190417
  Serious: Yes (Hospitalization, Other)
  Sender: FDA-Public Use
  Company Number: PHHY2012CA097634

PATIENT
  Age: 65 Year
  Sex: Male

DRUGS (3)
  1. SANDOSTATIN LAR DEPOT [Suspect]
     Active Substance: OCTREOTIDE ACETATE
     Dosage: 30 MG, QMO (EVERY 4 WEEKS)
     Route: 030
     Dates: start: 20140903
  2. SANDOSTATIN LAR DEPOT [Suspect]
     Active Substance: OCTREOTIDE ACETATE
     Indication: NEUROENDOCRINE TUMOUR
     Dosage: 20 MG, QMO
     Route: 030
     Dates: start: 20121024
  3. CAPECITABINE. [Concomitant]
     Active Substance: CAPECITABINE
     Indication: PRODUCT USED FOR UNKNOWN INDICATION
     Dosage: UNK
     Route: 048

REACTIONS (43)
  - Urinary retention [Not Recovered/Not Resolved]
  - Limb discomfort [Unknown]
  - Liver disorder [Unknown]
  - Weight decreased [Unknown]
  - Heart rate increased [Unknown]
  - Feeling abnormal [Unknown]
  - Bone pain [Recovered/Resolved]
  - Body temperature decreased [Unknown]
  - Insomnia [Unknown]
  - Diarrhoea [Unknown]
  - Hypothyroidism [Unknown]
  - Headache [Recovered/Resolved]
  - Fall [Unknown]
  - Joint injury [Unknown]
  - Scratch [Recovered/Resolved]
  - Somnolence [Unknown]
  - White blood cell count abnormal [Unknown]
  - Nerve injury [Unknown]
  - Vomiting [Unknown]
  - Nausea [Recovered/Resolved]
  - Intervertebral disc protrusion [Unknown]
  - Road traffic accident [Unknown]
  - Micturition urgency [Unknown]
  - Multiple injuries [Unknown]
  - Head injury [Unknown]
  - Abdominal pain upper [Recovered/Resolved]
  - Malignant neoplasm progression [Unknown]
  - Sleep disorder [Recovering/Resolving]
  - Epistaxis [Unknown]
  - Chest pain [Recovered/Resolved]
  - Fatigue [Unknown]
  - Neuroendocrine tumour [Unknown]
  - Dry skin [Unknown]
  - Skin tightness [Unknown]
  - Sensory loss [Unknown]
  - Musculoskeletal chest pain [Recovered/Resolved]
  - Pain in extremity [Recovering/Resolving]
  - Blood pressure increased [Unknown]
  - Limb injury [Unknown]
  - Bone disorder [Unknown]
  - White blood cell disorder [Recovered/Resolved]
  - Rash [Unknown]
  - Abdominal tenderness [Recovered/Resolved]

NARRATIVE: CASE EVENT DATE: 20121024
